FAERS Safety Report 14019855 (Version 1)
Quarter: 2017Q3

REPORT INFORMATION
  Report Type: Spontaneous
  Country: FR (occurrence: FR)
  Receive Date: 20170928
  Receipt Date: 20170928
  Transmission Date: 20171128
  Serious: Yes (Death)
  Sender: FDA-Public Use
  Company Number: FR-ACTELION-A-CH2017-159737

PATIENT
  Age: 73 Year
  Sex: Female

DRUGS (1)
  1. VELETRI [Suspect]
     Active Substance: EPOPROSTENOL
     Indication: PULMONARY ARTERIAL HYPERTENSION
     Dosage: UNK UNK, QD
     Route: 042
     Dates: start: 201605, end: 201708

REACTIONS (2)
  - Cardiac failure [Fatal]
  - Concomitant disease aggravated [Fatal]
